FAERS Safety Report 5037362-0 (Version None)
Quarter: 2006Q2

REPORT INFORMATION
  Report Type: 
  Country: None (occurrence: None)
  Receive Date: 20060605
  Receipt Date: 20060315
  Transmission Date: 20061013
  Serious: No
  Sender: FDA-Public Use
  Company Number: IND-AE-06-SAN-014

PATIENT
  Sex: Male

DRUGS (1)
  1. SANCTURA [Suspect]

REACTIONS (3)
  - CONSTIPATION [None]
  - DRY MOUTH [None]
  - VISION BLURRED [None]
